FAERS Safety Report 6959153-3 (Version None)
Quarter: 2010Q3

REPORT INFORMATION
  Report Type: 
  Country: None (occurrence: None)
  Receive Date: 20100831
  Receipt Date: 20100818
  Transmission Date: 20110219
  Serious: Yes (Other)
  Sender: FDA-Public Use
  Company Number: PHHY2010BR55369

PATIENT
  Sex: Male

DRUGS (4)
  1. DIOVAN [Suspect]
     Dosage: 80 MG
     Route: 048
  2. DIOVAN [Suspect]
     Dosage: 160 MG
     Route: 048
  3. DIOVAN [Suspect]
     Dosage: 80 MG, 1 TABLET DAILY
     Route: 048
  4. DIOVAN [Suspect]
     Dosage: 160 MG, 1 TABLET DAILY
     Route: 048
     Dates: start: 20100812

REACTIONS (3)
  - FEELING ABNORMAL [None]
  - HYPERTENSION [None]
  - MALAISE [None]
